FAERS Safety Report 10413303 (Version 1)
Quarter: 2014Q3

REPORT INFORMATION
  Report Type: Spontaneous
  Country: CN (occurrence: CN)
  Receive Date: 20140827
  Receipt Date: 20140827
  Transmission Date: 20150326
  Serious: Yes (Hospitalization)
  Sender: FDA-Public Use
  Company Number: CN-PFIZER INC-2014232201

PATIENT
  Age: 59 Year
  Sex: Female
  Weight: 55 kg

DRUGS (5)
  1. CIPROBAY [Suspect]
     Active Substance: CIPROFLOXACIN
     Indication: BACTERAEMIA
     Dosage: 200 MG, 2X/DAY
     Route: 041
     Dates: start: 20140102, end: 20140111
  2. VANCOMYCIN HYDROCHLORIDE. [Suspect]
     Active Substance: VANCOMYCIN HYDROCHLORIDE
     Indication: BACTERAEMIA
     Dosage: 1000 MG, 2X/DAY
     Route: 041
     Dates: start: 20140102, end: 20140113
  3. DIFLUCAN [Suspect]
     Active Substance: FLUCONAZOLE
     Indication: BACTERAEMIA
     Dosage: 200 MG, 2X/DAY
     Route: 041
     Dates: start: 20140110, end: 20140113
  4. TIENAM [Suspect]
     Active Substance: CILASTATIN SODIUM\IMIPENEM
     Indication: BACTERAEMIA
     Dosage: 500 MG, 3X/DAY
     Route: 041
     Dates: start: 20140111, end: 20140113
  5. TARGOCID [Suspect]
     Active Substance: TEICOPLANIN
     Indication: BACTERAEMIA
     Dosage: 200 MG, 1X/DAY
     Route: 041
     Dates: start: 20131218, end: 20140102

REACTIONS (2)
  - Hyperpyrexia [Recovered/Resolved]
  - Rash [Recovered/Resolved]

NARRATIVE: CASE EVENT DATE: 20140111
